FAERS Safety Report 4292207-1 (Version None)
Quarter: 2004Q1

REPORT INFORMATION
  Report Type: 
  Country: None (occurrence: None)
  Receive Date: 20040126
  Receipt Date: 20031103
  Transmission Date: 20041129
  Serious: No
  Sender: FDA-Public Use
  Company Number: USA030845492

PATIENT
  Age: 80 Year
  Sex: Female
  Weight: 46 kg

DRUGS (3)
  1. FORTEO [Suspect]
     Indication: OSTEOPOROSIS
     Dosage: 20 UG/DAY DAY
     Dates: start: 20030813
  2. THYROID TAB [Concomitant]
  3. ATENOLOL [Concomitant]

REACTIONS (5)
  - CHILLS [None]
  - LYMPHADENOPATHY [None]
  - MYALGIA [None]
  - POLLAKIURIA [None]
  - RASH PRURITIC [None]
